FAERS Safety Report 9223166 (Version 1)
Quarter: 2013Q2

REPORT INFORMATION
  Report Type: Spontaneous
  Country: US (occurrence: None)
  Receive Date: 20130409
  Receipt Date: 20130409
  Transmission Date: 20140414
  Serious: Yes (Death)
  Sender: FDA-Public Use
  Company Number: None

PATIENT
  Sex: Male
  Weight: 57.15 kg

DRUGS (1)
  1. ADVAIR [Suspect]

REACTIONS (2)
  - Pneumonia [None]
  - Chronic obstructive pulmonary disease [None]
